FAERS Safety Report 25968092 (Version 2)
Quarter: 2025Q4

REPORT INFORMATION
  Report Type: Spontaneous
  Country: JP (occurrence: JP)
  Receive Date: 20251028
  Receipt Date: 20251231
  Transmission Date: 20260118
  Serious: Yes (Hospitalization)
  Sender: ROCHE
  Company Number: JP-ROCHE-10000416092

PATIENT
  Age: 4 Year
  Sex: Male
  Weight: 19 kg

DRUGS (1)
  1. EMICIZUMAB [Suspect]
     Active Substance: EMICIZUMAB
     Indication: Factor VIII deficiency
     Dosage: 2
     Route: 058
     Dates: start: 20210325

REACTIONS (3)
  - Intra-abdominal haemorrhage [Unknown]
  - Small intestinal obstruction [Unknown]
  - Intestinal haematoma [Recovered/Resolved]

NARRATIVE: CASE EVENT DATE: 20250301
